FAERS Safety Report 8395449-9 (Version None)
Quarter: 2012Q2

REPORT INFORMATION
  Report Type: 
  Country: None (occurrence: None)
  Receive Date: 20120525
  Receipt Date: 20120525
  Transmission Date: 20120825
  Serious: No
  Sender: FDA-Public Use
  Company Number: None

PATIENT

DRUGS (2)
  1. LANTUS [Suspect]
  2. NOVOLOG [Suspect]

REACTIONS (5)
  - JOINT SWELLING [None]
  - RASH [None]
  - BACK PAIN [None]
  - CHEST DISCOMFORT [None]
  - OEDEMA PERIPHERAL [None]
